FAERS Safety Report 16497754 (Version 3)
Quarter: 2019Q3

REPORT INFORMATION
  Report Type: Report from Study
  Country: US (occurrence: US)
  Receive Date: 20190628
  Receipt Date: 20190711
  Transmission Date: 20191004
  Serious: Yes (Hospitalization, Other)
  Sender: FDA-Public Use
  Company Number: US-GILEAD-2019-0415464

PATIENT
  Age: 49 Year
  Sex: Female

DRUGS (5)
  1. TREPROSTINIL. [Concomitant]
     Active Substance: TREPROSTINIL
  2. AMBRISENTAN [Suspect]
     Active Substance: AMBRISENTAN
     Indication: PULMONARY ARTERIAL HYPERTENSION
     Dosage: 10 MG, QD
     Route: 048
     Dates: start: 20190201
  3. REMODULIN [Concomitant]
     Active Substance: TREPROSTINIL
  4. EPOPROSTENOL. [Concomitant]
     Active Substance: EPOPROSTENOL
  5. OXYGEN. [Concomitant]
     Active Substance: OXYGEN

REACTIONS (17)
  - Malaise [Not Recovered/Not Resolved]
  - Oxygen saturation abnormal [Not Recovered/Not Resolved]
  - Feeling of body temperature change [Not Recovered/Not Resolved]
  - Dyspnoea exertional [Not Recovered/Not Resolved]
  - Dyspnoea [Not Recovered/Not Resolved]
  - Hot flush [Not Recovered/Not Resolved]
  - Dry skin [Not Recovered/Not Resolved]
  - Rash macular [Not Recovered/Not Resolved]
  - Chest discomfort [Not Recovered/Not Resolved]
  - Palpitations [Unknown]
  - Alopecia [Recovering/Resolving]
  - Chest pain [Not Recovered/Not Resolved]
  - Pain in jaw [Not Recovered/Not Resolved]
  - Lung disorder [Not Recovered/Not Resolved]
  - Cold sweat [Unknown]
  - Hyperhidrosis [Unknown]
  - Flushing [Not Recovered/Not Resolved]
